FAERS Safety Report 5064006-4 (Version None)
Quarter: 2006Q3

REPORT INFORMATION
  Report Type: 
  Country: None (occurrence: None)
  Receive Date: 20060703
  Receipt Date: 20050927
  Transmission Date: 20061208
  Serious: No
  Sender: FDA-Public Use
  Company Number: 2005S1009736

PATIENT
  Age: 49 Year
  Sex: Male
  Weight: 99.7913 kg

DRUGS (8)
  1. CLOZAPINE [Suspect]
     Indication: SCHIZOAFFECTIVE DISORDER
     Dosage: SEE IMAGE
     Route: 048
     Dates: start: 20050725, end: 20050914
  2. CLOZAPINE [Suspect]
     Indication: SCHIZOAFFECTIVE DISORDER
     Dosage: SEE IMAGE
     Route: 048
     Dates: start: 20050725, end: 20050914
  3. ESCITALOPRAM [Concomitant]
  4. OXCARBAZEPINE [Concomitant]
  5. RISPERIDONE [Concomitant]
  6. BENZTROPINE MESYLATE [Concomitant]
  7. CLONAZEPAM [Concomitant]
  8. OLANZAPINE [Concomitant]

REACTIONS (1)
  - GRANULOCYTOPENIA [None]
